FAERS Safety Report 9465885 (Version 2)
Quarter: 2013Q3

REPORT INFORMATION
  Report Type: Spontaneous
  Country: JP (occurrence: JP)
  Receive Date: 20130820
  Receipt Date: 20130827
  Transmission Date: 20140515
  Serious: Yes (Death, Disabling, Other)
  Sender: FDA-Public Use
  Company Number: JP-GENZYME-THYM-1004014

PATIENT
  Age: 10 Year
  Sex: Female
  Weight: 14 kg

DRUGS (4)
  1. THYMOGLOBULINE [Suspect]
     Indication: INTESTINE TRANSPLANT REJECTION
     Dosage: 1.8 UNK, UNK
     Route: 065
     Dates: start: 20111208, end: 20111214
  2. METHYLPREDNISOLONE [Suspect]
     Indication: PRODUCT USED FOR UNKNOWN INDICATION
     Dosage: UNK
     Route: 065
     Dates: start: 20111116
  3. METHYLPREDNISOLONE [Suspect]
     Dosage: 75-150 MG, UNK
     Route: 065
     Dates: start: 20111204, end: 20111212
  4. TACROLIMUS [Suspect]
     Indication: PRODUCT USED FOR UNKNOWN INDICATION
     Dosage: UNK
     Route: 065
     Dates: start: 20111115, end: 20120208

REACTIONS (4)
  - Cerebral haemorrhage [Fatal]
  - Brain abscess [Fatal]
  - Renal failure acute [Not Recovered/Not Resolved]
  - Aspergillus infection [Not Recovered/Not Resolved]
